FAERS Safety Report 19949962 (Version 1)
Quarter: 2021Q4

REPORT INFORMATION
  Report Type: Other
  Country: US (occurrence: US)
  Receive Date: 20211013
  Receipt Date: 20211013
  Transmission Date: 20220303
  Serious: Yes (Other)
  Sender: FDA-Public Use
  Company Number: US-ROCHE-2930427

PATIENT
  Sex: Female
  Weight: 66.28 kg

DRUGS (5)
  1. HERCEPTIN [Suspect]
     Active Substance: TRASTUZUMAB
     Indication: Breast cancer female
     Dosage: INFUSE 6MG/KG INTRAVENOUSLY EVERY 21 DAY(S)
     Route: 042
     Dates: start: 20170824
  2. HERCEPTIN [Suspect]
     Active Substance: TRASTUZUMAB
     Indication: Metastases to bone
  3. HERCEPTIN [Suspect]
     Active Substance: TRASTUZUMAB
     Indication: Metastases to liver
  4. HERCEPTIN [Suspect]
     Active Substance: TRASTUZUMAB
     Indication: Bile duct cancer
  5. HERCEPTIN [Suspect]
     Active Substance: TRASTUZUMAB
     Indication: Brain neoplasm

REACTIONS (3)
  - Nausea [Unknown]
  - Agranulocytosis [Unknown]
  - Vomiting [Unknown]
